FAERS Safety Report 15277171 (Version 1)
Quarter: 2018Q3

REPORT INFORMATION
  Report Type: Report from Study
  Country: TR (occurrence: TR)
  Receive Date: 20180814
  Receipt Date: 20180814
  Transmission Date: 20181010
  Serious: Yes (Other)
  Sender: FDA-Public Use
  Company Number: TR-JAZZ-2018-TR-012322

PATIENT
  Age: 48 Year
  Sex: Male
  Weight: 95 kg

DRUGS (2)
  1. XYREM [Suspect]
     Active Substance: SODIUM OXYBATE
     Indication: NARCOLEPSY
     Dosage: UNK
     Route: 048
     Dates: start: 20180327
  2. XYREM [Suspect]
     Active Substance: SODIUM OXYBATE
     Indication: CATAPLEXY

REACTIONS (23)
  - Irritability [Unknown]
  - Peripheral swelling [Unknown]
  - Asthenia [Unknown]
  - Weight increased [Unknown]
  - Blood pressure decreased [Unknown]
  - Bruxism [Unknown]
  - Abnormal dreams [Unknown]
  - Paranoia [Unknown]
  - Nausea [Unknown]
  - Restlessness [Unknown]
  - Headache [Unknown]
  - Memory impairment [Unknown]
  - Pain [Unknown]
  - Cough [Unknown]
  - Swelling face [Unknown]
  - Hallucination [Unknown]
  - Blood pressure increased [Unknown]
  - Fatigue [Unknown]
  - Abdominal distension [Unknown]
  - Dizziness [Unknown]
  - Suicidal ideation [Unknown]
  - Swelling [Unknown]
  - Unevaluable event [Unknown]

NARRATIVE: CASE EVENT DATE: 2018
